FAERS Safety Report 25671183 (Version 1)
Quarter: 2025Q3

REPORT INFORMATION
  Report Type: Spontaneous
  Country: GB (occurrence: GB)
  Receive Date: 20250812
  Receipt Date: 20250812
  Transmission Date: 20251020
  Serious: Yes (Hospitalization, Other)
  Sender: BAYER HEALTHCARE PHARMACEUTICALS INC.
  Company Number: None

PATIENT
  Age: 38 Year
  Sex: Female

DRUGS (2)
  1. ESTRADIOL [Suspect]
     Active Substance: ESTRADIOL
     Dosage: 1 DF, BIW
     Route: 062
  2. ESTRADIOL [Concomitant]
     Active Substance: ESTRADIOL
     Dosage: 1 DF, BIW
     Route: 067

REACTIONS (7)
  - Basilar artery thrombosis [Recovered/Resolved]
  - Hemiparesis [None]
  - Influenza like illness [None]
  - Headache [None]
  - Musculoskeletal stiffness [None]
  - Dysarthria [None]
  - Diplopia [None]
